FAERS Safety Report 23342808 (Version 1)
Quarter: 2023Q4

REPORT INFORMATION
  Report Type: Spontaneous
  Country: US (occurrence: US)
  Receive Date: 20231227
  Receipt Date: 20231227
  Transmission Date: 20240110
  Serious: No
  Sender: FDA-Public Use
  Company Number: US-GSKCCFUS-Case-01889134_AE-105440

PATIENT
  Sex: Male

DRUGS (1)
  1. JEMPERLI [Suspect]
     Active Substance: DOSTARLIMAB-GXLY
     Indication: Colon cancer stage I
     Dosage: UNK UNK, Q3W
     Route: 042
     Dates: start: 20231108

REACTIONS (4)
  - Fatigue [Recovered/Resolved]
  - Myalgia [Recovered/Resolved]
  - Somnolence [Recovered/Resolved]
  - Product use in unapproved indication [Unknown]
